FAERS Safety Report 19854369 (Version 1)
Quarter: 2021Q3

REPORT INFORMATION
  Report Type: Spontaneous
  Country: US (occurrence: US)
  Receive Date: 20210920
  Receipt Date: 20210920
  Transmission Date: 20211014
  Serious: No
  Sender: FDA-Public Use
  Company Number: US-ACCORD-218150

PATIENT
  Sex: Male
  Weight: 90.91 kg

DRUGS (4)
  1. GLIMEPIRIDE ACCORD [Suspect]
     Active Substance: GLIMEPIRIDE
     Indication: TYPE 2 DIABETES MELLITUS
     Dosage: ONCE DAY
     Route: 048
     Dates: start: 20210117, end: 20210212
  2. MELOXICAM. [Concomitant]
     Active Substance: MELOXICAM
     Dosage: STRENGTH?15MG, ONCE A DAY
     Route: 048
  3. HYDROCODONE/PARACETAMOL [Concomitant]
     Active Substance: ACETAMINOPHEN\HYDROCODONE BITARTRATE
     Dosage: STRENGTH?7.5MG/325 MG, 3 TIMES A DAY AS NEEDED
     Route: 048
  4. LISINOPRIL. [Concomitant]
     Active Substance: LISINOPRIL
     Dosage: STRENGTH?10 MG, ONCE DAY
     Route: 048

REACTIONS (3)
  - Dizziness [Unknown]
  - Product substitution issue [Unknown]
  - Blood glucose increased [Unknown]
